FAERS Safety Report 24330190 (Version 1)
Quarter: 2024Q3

REPORT INFORMATION
  Report Type: Report from Study
  Country: MX (occurrence: MX)
  Receive Date: 20240917
  Receipt Date: 20240917
  Transmission Date: 20241017
  Serious: Yes (Hospitalization, Other)
  Sender: TAKEDA
  Company Number: MX-TAKEDA-2024TUS010671

PATIENT
  Age: 21 Year
  Sex: Male
  Weight: 21 kg

DRUGS (3)
  1. IDURSULFASE [Suspect]
     Active Substance: IDURSULFASE
     Indication: Mucopolysaccharidosis II
     Dosage: UNK UNK, 1/WEEK
     Route: 042
     Dates: start: 20130601
  2. IDURSULFASE [Suspect]
     Active Substance: IDURSULFASE
     Dosage: 12 MILLIGRAM, 1/WEEK
     Route: 042
  3. IDURSULFASE [Suspect]
     Active Substance: IDURSULFASE
     Dosage: UNK UNK, 1/WEEK
     Route: 042

REACTIONS (7)
  - Productive cough [Recovering/Resolving]
  - Oxygen saturation decreased [Recovering/Resolving]
  - Secretion discharge [Recovering/Resolving]
  - Pneumonia [Not Recovered/Not Resolved]
  - Inappropriate schedule of product administration [Unknown]
  - Dyspnoea [Not Recovered/Not Resolved]
  - Pyrexia [Not Recovered/Not Resolved]

NARRATIVE: CASE EVENT DATE: 20240207
